FAERS Safety Report 8757324 (Version 3)
Quarter: 2013Q2

REPORT INFORMATION
  Report Type: Report from Study
  Country: JP (occurrence: JP)
  Receive Date: 20120828
  Receipt Date: 20130401
  Transmission Date: 20140414
  Serious: Yes (Other)
  Sender: FDA-Public Use
  Company Number: JP-VERTEX PHARMACEUTICAL INC.-AE-2012-008473

PATIENT
  Age: 50 Year
  Sex: Male

DRUGS (9)
  1. VX-950 (TELAPREVIR) [Suspect]
     Indication: CHRONIC HEPATITIS C
     Dosage: 2250 MG, TID
     Route: 048
     Dates: start: 20120220, end: 20120507
  2. VX-950 (TELAPREVIR) [Suspect]
     Dosage: 1500 MG, TID
     Route: 048
     Dates: start: 20120508, end: 20120515
  3. RIBAVIRIN [Suspect]
     Indication: CHRONIC HEPATITIS C
     Dosage: 800 MG, QD
     Route: 048
     Dates: start: 20120220, end: 20120416
  4. RIBAVIRIN [Suspect]
     Dosage: 600 MG, QD
     Route: 048
     Dates: start: 20120417, end: 20120807
  5. PEGINTRON [Suspect]
     Indication: CHRONIC HEPATITIS C
     Dosage: 100 ?G, QW
     Route: 058
     Dates: start: 20120220, end: 20120327
  6. PEGINTRON [Suspect]
     Dosage: 50 ?G, QW
     Route: 058
     Dates: start: 20120403, end: 20120807
  7. MUCOSTA [Concomitant]
     Dosage: 300 MG, QD
     Route: 048
     Dates: start: 20120222
  8. MARZULENE-S [Concomitant]
     Dosage: 2.01 G, UNK
     Route: 048
     Dates: start: 20120222
  9. GASTER D [Concomitant]
     Dosage: 40 MG, QD
     Route: 048

REACTIONS (3)
  - White blood cell count decreased [Recovered/Resolved]
  - Retinopathy [Recovered/Resolved]
  - Haemoglobin decreased [Recovered/Resolved]
